FAERS Safety Report 4611053-X (Version None)
Quarter: 2005Q1

REPORT INFORMATION
  Report Type: 
  Country: None (occurrence: None)
  Receive Date: 20050316
  Receipt Date: 20050316
  Transmission Date: 20050727
  Serious: Yes (Hospitalization)
  Sender: FDA-Public Use
  Company Number: None

PATIENT
  Age: 56 Year
  Sex: Male
  Weight: 167.3773 kg

DRUGS (10)
  1. HYDROCHLOROTHIAZIDE [Suspect]
     Indication: OEDEMA
     Dosage: 25 MG PO QD
     Route: 048
  2. FUROSEMIDE [Suspect]
     Indication: OEDEMA
     Dosage: 20 MG PO QD
     Route: 048
  3. AMIODARONE, [Concomitant]
  4. FERROUS SULFATE TAB [Concomitant]
  5. INSULIN [Concomitant]
  6. METFORMIN HCL [Concomitant]
  7. METOCLOPRAMIDE [Concomitant]
  8. SERTRALINE HCL [Concomitant]
  9. VERAPAMIL [Concomitant]
  10. WARFARIN [Concomitant]

REACTIONS (2)
  - DIZZINESS [None]
  - LOSS OF CONSCIOUSNESS [None]
